FAERS Safety Report 6503986-4 (Version None)
Quarter: 2009Q4

REPORT INFORMATION
  Report Type: 
  Country: None (occurrence: None)
  Receive Date: 20091216
  Receipt Date: 20091216
  Transmission Date: 20100525
  Serious: Yes (Hospitalization)
  Sender: FDA-Public Use
  Company Number: None

PATIENT
  Age: 53 Year
  Sex: Female

DRUGS (3)
  1. VALPROIC ACID [Suspect]
     Indication: AFFECTIVE DISORDER
     Dosage: 750MG BID PO
     Route: 048
     Dates: start: 20051101
  2. VALPROIC ACID [Suspect]
     Indication: BIPOLAR DISORDER
     Dosage: 750MG BID PO
     Route: 048
     Dates: start: 20051101
  3. LAMOTRIGINE [Suspect]
     Indication: BIPOLAR DISORDER
     Dosage: 50MG DAILY PO
     Route: 048
     Dates: start: 20080501

REACTIONS (3)
  - ATAXIA [None]
  - MUSCLE RIGIDITY [None]
  - TREMOR [None]
